FAERS Safety Report 4895763-5 (Version None)
Quarter: 2006Q1

REPORT INFORMATION
  Report Type: 
  Country: None (occurrence: None)
  Receive Date: 20060124
  Receipt Date: 20060112
  Transmission Date: 20060701
  Serious: Yes (Hospitalization)
  Sender: FDA-Public Use
  Company Number: 2006BH000665

PATIENT
  Age: 66 Year
  Sex: Female

DRUGS (1)
  1. IGIV GENERIC [Suspect]
     Dosage: IV
     Route: 042

REACTIONS (17)
  - AGITATION [None]
  - AUTONOMIC NERVOUS SYSTEM IMBALANCE [None]
  - BLINDNESS CORTICAL [None]
  - BLOOD PRESSURE INADEQUATELY CONTROLLED [None]
  - BRAIN OEDEMA [None]
  - CEREBRAL INFARCTION [None]
  - CEREBRAL VASOCONSTRICTION [None]
  - CONFUSIONAL STATE [None]
  - CONVULSION [None]
  - DYSPHAGIA [None]
  - DYSPNOEA [None]
  - FACIAL PALSY [None]
  - HYPERTENSION [None]
  - ISCHAEMIC STROKE [None]
  - QUADRIPLEGIA [None]
  - REVERSIBLE POSTERIOR LEUKOENCEPHALOPATHY SYNDROME [None]
  - SUBARACHNOID HAEMORRHAGE [None]
